FAERS Safety Report 24299179 (Version 1)
Quarter: 2024Q3

REPORT INFORMATION
  Report Type: Spontaneous
  Country: US (occurrence: US)
  Receive Date: 20240909
  Receipt Date: 20240909
  Transmission Date: 20241017
  Serious: No
  Sender: PFIZER
  Company Number: US-PFIZER INC-202400250094

PATIENT
  Age: 52 Year
  Sex: Female
  Weight: 50.6 kg

DRUGS (1)
  1. GEMCITABINE HYDROCHLORIDE [Suspect]
     Active Substance: GEMCITABINE HYDROCHLORIDE
     Indication: Nasopharyngeal cancer
     Dosage: 1610 MG
     Route: 042

REACTIONS (2)
  - Injection site pain [Unknown]
  - Off label use [Unknown]
